FAERS Safety Report 5151475-4 (Version None)
Quarter: 2006Q4

REPORT INFORMATION
  Report Type: 
  Country: None (occurrence: None)
  Receive Date: 20061114
  Receipt Date: 20061114
  Transmission Date: 20070319
  Serious: No
  Sender: FDA-Public Use
  Company Number: None

PATIENT
  Sex: Male

DRUGS (1)
  1. POLYETHYLENE GLYCOL [Suspect]
     Dosage: 17GM MIXED IN WATER, DRINK ORALLYTWICE A DAY
     Route: 048
     Dates: start: 20060928

REACTIONS (2)
  - DYSGEUSIA [None]
  - PHARMACEUTICAL PRODUCT COMPLAINT [None]
